FAERS Safety Report 20101475 (Version 1)
Quarter: 2021Q4

REPORT INFORMATION
  Report Type: Spontaneous
  Country: IT (occurrence: IT)
  Receive Date: 20211123
  Receipt Date: 20211123
  Transmission Date: 20220304
  Serious: Yes (Hospitalization)
  Sender: FDA-Public Use
  Company Number: None

PATIENT
  Age: 55 Year
  Sex: Female
  Weight: 67 kg

DRUGS (6)
  1. OCREVUS [Suspect]
     Active Substance: OCRELIZUMAB
     Indication: Relapsing multiple sclerosis
     Route: 042
     Dates: start: 20190611, end: 20210203
  2. TOVIAZ PROLONGED RELEASE [Concomitant]
     Route: 048
  3. SILODOSIN [Concomitant]
     Active Substance: SILODOSIN
  4. RAMIPRIL [Concomitant]
     Active Substance: RAMIPRIL
     Route: 048
  5. LIORESAL [Concomitant]
     Active Substance: BACLOFEN
     Route: 048
  6. BISOPROLOL [Concomitant]
     Active Substance: BISOPROLOL
     Route: 048

REACTIONS (1)
  - Endometrial adenocarcinoma [Unknown]

NARRATIVE: CASE EVENT DATE: 20210501
